FAERS Safety Report 5556361-3 (Version None)
Quarter: 2007Q4

REPORT INFORMATION
  Report Type: 
  Country: None (occurrence: None)
  Receive Date: 20071213
  Receipt Date: 20071005
  Transmission Date: 20080405
  Serious: No
  Sender: FDA-Public Use
  Company Number: US-AMGEN-KDL235899

PATIENT
  Sex: Female

DRUGS (3)
  1. ENBREL [Suspect]
     Indication: RHEUMATOID ARTHRITIS
     Route: 058
     Dates: start: 20061015
  2. ARAVA [Concomitant]
     Dates: start: 20061001
  3. SULFASALAZINE [Concomitant]
     Dates: start: 20061001

REACTIONS (5)
  - ACNE [None]
  - IMPAIRED HEALING [None]
  - INFLAMMATION [None]
  - JOINT FLUID DRAINAGE [None]
  - WOUND [None]
